FAERS Safety Report 16771171 (Version 4)
Quarter: 2019Q4

REPORT INFORMATION
  Report Type: Spontaneous
  Country: CL (occurrence: CL)
  Receive Date: 20190904
  Receipt Date: 20191028
  Transmission Date: 20200122
  Serious: Yes (Hospitalization)
  Sender: FDA-Public Use
  Company Number: CL-EMD SERONO-9112210

PATIENT
  Age: 33 Year
  Sex: Male

DRUGS (1)
  1. MAVENCLAD [Suspect]
     Active Substance: CLADRIBINE
     Indication: RELAPSING-REMITTING MULTIPLE SCLEROSIS
     Dosage: FIRST YEAR FIRST WEEK THERAPY: TWO TABLETS ON DAYS 1 TO 4 (MONDAY TO THURSDAY) AND ONE TABLET ON DAY
     Route: 048
     Dates: start: 20190805

REACTIONS (2)
  - Metapneumovirus infection [Recovered/Resolved]
  - Lymphocyte percentage decreased [Recovering/Resolving]

NARRATIVE: CASE EVENT DATE: 201908
